FAERS Safety Report 5396018-5 (Version None)
Quarter: 2007Q3

REPORT INFORMATION
  Report Type: 
  Country: None (occurrence: None)
  Receive Date: 20070724
  Receipt Date: 20070712
  Transmission Date: 20080115
  Serious: Yes (Hospitalization)
  Sender: FDA-Public Use
  Company Number: US-PFIZER INC-2007058390

PATIENT
  Sex: Male
  Weight: 65.8 kg

DRUGS (9)
  1. CELEBREX [Suspect]
     Indication: NECK PAIN
     Dates: start: 19990922, end: 20030201
  2. CELEBREX [Suspect]
     Indication: BACK PAIN
  3. CELEBREX [Suspect]
     Indication: ARTHRITIS
  4. ADVIL LIQUI-GELS [Concomitant]
  5. ALEVE [Concomitant]
  6. CODEINE SUL TAB [Concomitant]
  7. MOBIC [Concomitant]
  8. TYLENOL (CAPLET) [Concomitant]
  9. VIOXX [Concomitant]

REACTIONS (2)
  - CARDIAC DISORDER [None]
  - GASTROINTESTINAL HAEMORRHAGE [None]
